FAERS Safety Report 10279644 (Version 3)
Quarter: 2014Q3

REPORT INFORMATION
  Report Type: Spontaneous
  Country: JP (occurrence: JP)
  Receive Date: 20140707
  Receipt Date: 20140912
  Transmission Date: 20150326
  Serious: Yes (Hospitalization, Other)
  Sender: FDA-Public Use
  Company Number: JP-ASTELLAS-2014JP012324

PATIENT
  Age: 78 Year
  Sex: Male
  Weight: 52 kg

DRUGS (5)
  1. XTANDI [Suspect]
     Active Substance: ENZALUTAMIDE
     Indication: HORMONE-REFRACTORY PROSTATE CANCER
     Route: 048
     Dates: start: 20140604
  2. MONTELUKAST [Concomitant]
     Active Substance: MONTELUKAST SODIUM
     Indication: ASTHMA
     Route: 048
  3. WARFARIN [Suspect]
     Active Substance: WARFARIN
     Indication: PULMONARY THROMBOSIS
  4. WARFARIN [Suspect]
     Active Substance: WARFARIN
     Indication: DEEP VEIN THROMBOSIS
     Dosage: 0.5 MG, ONCE DAILY
     Route: 048
     Dates: start: 20140620, end: 20140702
  5. WARFARIN [Suspect]
     Active Substance: WARFARIN
     Indication: PELVIC VENOUS THROMBOSIS
     Route: 048
     Dates: start: 201312, end: 20140619

REACTIONS (2)
  - Prothrombin time prolonged [Recovered/Resolved]
  - Diverticulum intestinal haemorrhagic [Recovered/Resolved]

NARRATIVE: CASE EVENT DATE: 20140619
